FAERS Safety Report 25616613 (Version 1)
Quarter: 2025Q3

REPORT INFORMATION
  Report Type: Spontaneous
  Country: EU (occurrence: EU)
  Receive Date: 20250729
  Receipt Date: 20250729
  Transmission Date: 20251021
  Serious: Yes (Hospitalization)
  Sender: TEVA
  Company Number: None

PATIENT
  Age: 68 Year
  Sex: Male
  Weight: 60 kg

DRUGS (8)
  1. COTRIMOXAZOLE [Suspect]
     Active Substance: SULFAMETHOXAZOLE\TRIMETHOPRIM
     Indication: Urinary tract infection
     Dosage: COTRIMOXAZOLE TEVA 800 MG/160 MG
     Route: 048
     Dates: start: 20250504, end: 20250520
  2. CLINDAMYCIN [Suspect]
     Active Substance: CLINDAMYCIN
     Indication: Urinary tract infection
     Route: 048
     Dates: start: 20250504, end: 20250520
  3. CEFTRIAXONE [Suspect]
     Active Substance: CEFTRIAXONE
     Indication: Urinary tract infection
     Dosage: 1 G/3.5 ML, POWDER AND SOLVENT FOR SOLUTION FOR INJECTION (I.M.)
     Route: 030
     Dates: start: 20250611, end: 20250616
  4. AZACTAM [Suspect]
     Active Substance: AZTREONAM
     Indication: Urinary tract infection
     Dosage: POWDER AND SOLUTION FOR PARENTERAL USE
     Route: 042
     Dates: start: 20250315, end: 20250331
  5. AMIKACIN [Suspect]
     Active Substance: AMIKACIN
     Indication: Urinary tract infection
     Route: 042
     Dates: start: 20250314, end: 20250314
  6. CIPROFLOXACIN [Suspect]
     Active Substance: CIPROFLOXACIN
     Indication: Urinary tract infection
     Dosage: 750 MG X2/DAY
     Route: 048
     Dates: start: 20250405
  7. CIPROFLOXACIN [Suspect]
     Active Substance: CIPROFLOXACIN
     Indication: Urinary tract infection
     Dosage: 500 MG X2/DAY
     Route: 048
     Dates: start: 20250401, end: 20250404
  8. MEROPENEM [Suspect]
     Active Substance: MEROPENEM
     Indication: Urinary tract infection
     Dosage: 500 MG X 3/DAY, MEROPENEM ARROW
     Route: 042
     Dates: start: 20250616, end: 20250623

REACTIONS (1)
  - Clostridium difficile colitis [Recovering/Resolving]

NARRATIVE: CASE EVENT DATE: 20250618
